FAERS Safety Report 20561567 (Version 1)
Quarter: 2022Q1

REPORT INFORMATION
  Report Type: Report from Study
  Country: KR (occurrence: KR)
  Receive Date: 20220307
  Receipt Date: 20220307
  Transmission Date: 20220423
  Serious: Yes (Other)
  Sender: FDA-Public Use
  Company Number: KR-TAKEDA-2022TUS015112

PATIENT
  Age: 54 Year
  Sex: Male

DRUGS (1)
  1. BRIGATINIB [Suspect]
     Active Substance: BRIGATINIB
     Indication: Non-small cell lung cancer
     Dosage: 180 MILLIGRAM
     Route: 048
     Dates: start: 20211201

REACTIONS (1)
  - Cerebral ischaemia [Unknown]

NARRATIVE: CASE EVENT DATE: 20220301
